FAERS Safety Report 8816644 (Version 2)
Quarter: 2012Q4

REPORT INFORMATION
  Report Type: Spontaneous
  Country: FR (occurrence: None)
  Receive Date: 20120928
  Receipt Date: 20121012
  Transmission Date: 20130627
  Serious: Yes (Hospitalization)
  Sender: FDA-Public Use
  Company Number: DSA_59219_2012

PATIENT
  Age: 86 Year
  Sex: Female

DRUGS (9)
  1. FLAGYL [Suspect]
     Indication: SEPSIS
     Route: 042
     Dates: start: 20120621, end: 20120627
  2. FLAGYL [Suspect]
     Indication: SEPSIS
     Route: 042
     Dates: start: 20120620, end: 20120620
  3. FLAGYL [Suspect]
     Indication: SEPSIS
     Route: 048
     Dates: start: 20120627, end: 20120702
  4. DEPAKINE [Suspect]
     Indication: LOSS OF CONSCIOUSNESS
     Route: 048
     Dates: start: 20120604, end: 20120627
  5. PRISTINAMYCIN [Suspect]
     Indication: ERYSIPELAS
     Route: 048
     Dates: start: 20120619, end: 20120620
  6. TARGOCID [Suspect]
     Indication: SEPSIS
     Route: 042
     Dates: start: 20120624, end: 20120628
  7. TARGOCID [Suspect]
     Indication: SEPSIS
     Route: 042
     Dates: start: 20120620, end: 20120623
  8. TARGOCID [Suspect]
     Indication: SEPSIS
     Route: 042
     Dates: start: 20120630, end: 20120701
  9. GENTAMICIN [Suspect]
     Indication: SEPSIS
     Route: 042
     Dates: start: 20120620, end: 20120620

REACTIONS (4)
  - Dermatitis exfoliative [None]
  - Staphylococcal sepsis [None]
  - Erysipelas [None]
  - Toxic skin eruption [None]
